FAERS Safety Report 19058664 (Version 1)
Quarter: 2021Q1

REPORT INFORMATION
  Report Type: Spontaneous
  Country: US (occurrence: US)
  Receive Date: 20210325
  Receipt Date: 20210325
  Transmission Date: 20210420
  Serious: No
  Sender: FDA-Public Use
  Company Number: US-ASTELLAS-2021US004337

PATIENT
  Age: 60 Year
  Sex: Female

DRUGS (2)
  1. PADCEV [Suspect]
     Active Substance: ENFORTUMAB VEDOTIN-EJFV
     Indication: BLADDER CANCER
     Dosage: UNK, UNKNOWN FREQ.
     Route: 065
     Dates: start: 20200730, end: 20200806
  2. KEYTRUDA [Concomitant]
     Active Substance: PEMBROLIZUMAB
     Indication: PRODUCT USED FOR UNKNOWN INDICATION
     Route: 065
     Dates: start: 20190930, end: 202007

REACTIONS (3)
  - Rash pruritic [Unknown]
  - Swelling [Recovered/Resolved]
  - Erythema [Recovered/Resolved]
